FAERS Safety Report 7988665-9 (Version None)
Quarter: 2011Q4

REPORT INFORMATION
  Report Type: 
  Country: None (occurrence: None)
  Receive Date: 20111218
  Receipt Date: 20111205
  Transmission Date: 20120403
  Serious: Yes (Hospitalization)
  Sender: FDA-Public Use
  Company Number: US-ELI_LILLY_AND_COMPANY-US201112002183

PATIENT
  Age: 43 Year
  Sex: Female

DRUGS (3)
  1. INSULIN [Concomitant]
  2. LEXAPRO [Concomitant]
     Dosage: 10 MG, UNK
  3. CYMBALTA [Suspect]
     Indication: PAIN
     Dosage: 20 MG, QD
     Dates: start: 20111128

REACTIONS (6)
  - FATIGUE [None]
  - HOSPITALISATION [None]
  - CONFUSIONAL STATE [None]
  - DRUG INEFFECTIVE [None]
  - ABNORMAL BEHAVIOUR [None]
  - NASOPHARYNGITIS [None]
